FAERS Safety Report 10861225 (Version 3)
Quarter: 2015Q4

REPORT INFORMATION
  Report Type: Spontaneous
  Country: FR (occurrence: FR)
  Receive Date: 20150224
  Receipt Date: 20151214
  Transmission Date: 20160304
  Serious: Yes (Other)
  Sender: FDA-Public Use
  Company Number: PHHY2015FR017910

PATIENT
  Age: 77 Year
  Sex: Female

DRUGS (2)
  1. TASIGNA [Suspect]
     Active Substance: NILOTINIB
     Indication: ACUTE LYMPHOCYTIC LEUKAEMIA
     Dosage: 2 DF, BID
     Route: 048
     Dates: start: 200802, end: 20150121
  2. KARDEGIC [Concomitant]
     Active Substance: ASPIRIN LYSINE
     Indication: PRODUCT USED FOR UNKNOWN INDICATION
     Route: 065

REACTIONS (2)
  - Carotid artery stenosis [Not Recovered/Not Resolved]
  - Peripheral artery stenosis [Not Recovered/Not Resolved]

NARRATIVE: CASE EVENT DATE: 20150121
